FAERS Safety Report 19405277 (Version 1)
Quarter: 2021Q2

REPORT INFORMATION
  Report Type: Spontaneous
  Country: DE (occurrence: DE)
  Receive Date: 20210611
  Receipt Date: 20210611
  Transmission Date: 20210717
  Serious: Yes (Hospitalization)
  Sender: FDA-Public Use
  Company Number: DE-TEVA-2021-DE-1920560

PATIENT
  Age: 78 Year
  Sex: Female

DRUGS (10)
  1. FUROSEMID [Concomitant]
     Active Substance: FUROSEMIDE
     Dosage: 40 MILLIGRAM DAILY; 1?0?0?0
  2. ATORVASTATIN [Concomitant]
     Active Substance: ATORVASTATIN
     Dosage: 40 MILLIGRAM DAILY; 0?0?1?0
  3. CANDESARTAN. [Concomitant]
     Active Substance: CANDESARTAN
     Dosage: 25 MILLIGRAM DAILY; 1?0?0?0
  4. ACETYLSALICYLSAURE [Concomitant]
     Active Substance: ASPIRIN
     Dosage: 100 MILLIGRAM DAILY; 1?0?0?0
  5. ADENURIC 80MG [Concomitant]
     Active Substance: FEBUXOSTAT
     Dosage: 80 MILLIGRAM DAILY; 1?0?0?0
  6. ATMADISC 50G/250G DISKUS [Concomitant]
     Dosage: 2 DOSAGE FORMS DAILY; 50 | 250 UG, 1?0?1?0, METERED DOSE INHALER
  7. METOPROLOL. [Suspect]
     Active Substance: METOPROLOL
     Dosage: 200 MILLIGRAM DAILY; 1?0?1?0
     Route: 065
  8. RIVAROXABAN [Concomitant]
     Active Substance: RIVAROXABAN
     Dosage: 15 MILLIGRAM DAILY; 1?0?0?0
  9. PANTOPRAZOL [Concomitant]
     Active Substance: PANTOPRAZOLE SODIUM
     Dosage: 20 MG, IF NECESSARY
  10. HYDROCHLOROTHIAZID [Concomitant]
     Active Substance: HYDROCHLOROTHIAZIDE
     Dosage: 25 MILLIGRAM DAILY; 1?0?0?0

REACTIONS (8)
  - Amnesia [Recovering/Resolving]
  - Syncope [Recovering/Resolving]
  - Pain [Unknown]
  - Musculoskeletal pain [Recovering/Resolving]
  - Headache [Recovering/Resolving]
  - Atrial fibrillation [Recovering/Resolving]
  - Bradycardia [Recovering/Resolving]
  - Fall [Unknown]
